FAERS Safety Report 12140656 (Version 1)
Quarter: 2016Q1

REPORT INFORMATION
  Report Type: Spontaneous
  Country: US (occurrence: US)
  Receive Date: 20160303
  Receipt Date: 20160303
  Transmission Date: 20160526
  Serious: Yes (Death)
  Sender: FDA-Public Use
  Company Number: US-MALLINCKRODT-T201600665

PATIENT
  Sex: Male

DRUGS (2)
  1. INOMAX [Suspect]
     Active Substance: NITRIC OXIDE
     Indication: OXYGEN SATURATION DECREASED
     Dosage: 20 PPM, CONTINUOUS
     Dates: start: 20160224
  2. INOMAX [Suspect]
     Active Substance: NITRIC OXIDE
     Indication: GENERAL PHYSICAL HEALTH DETERIORATION

REACTIONS (2)
  - Premature baby [Fatal]
  - Off label use [Unknown]

NARRATIVE: CASE EVENT DATE: 20160124
